FAERS Safety Report 7880433-1 (Version None)
Quarter: 2011Q4

REPORT INFORMATION
  Report Type: 
  Country: None (occurrence: None)
  Receive Date: 20111101
  Receipt Date: 20111025
  Transmission Date: 20120403
  Serious: Yes (Other)
  Sender: FDA-Public Use
  Company Number: PHEH2011US07751

PATIENT

DRUGS (1)
  1. RECLAST [Suspect]
     Route: 042

REACTIONS (3)
  - OEDEMA MOUTH [None]
  - PRURITUS [None]
  - SWOLLEN TONGUE [None]
